FAERS Safety Report 6250190-3 (Version None)
Quarter: 2009Q2

REPORT INFORMATION
  Report Type: 
  Country: None (occurrence: None)
  Receive Date: 20090626
  Receipt Date: 20090611
  Transmission Date: 20091009
  Serious: Yes (Hospitalization)
  Sender: FDA-Public Use
  Company Number: 2009-GWUS-0408

PATIENT
  Age: 46 Year
  Sex: Female
  Weight: 102.0593 kg

DRUGS (5)
  1. ALDARA [Suspect]
     Indication: ANOGENITAL WARTS
     Dosage: APPLICATION - 3XW - TOPICAL
     Route: 061
     Dates: start: 20090508, end: 20090527
  2. GLUCOSAMINE AND CHONDROITIN [Suspect]
     Indication: ARTHRALGIA
     Dosage: QD - PO
     Route: 048
  3. FISH-OIL [Suspect]
     Indication: ROUTINE HEALTH MAINTENANCE
     Dosage: QD - PO
     Route: 048
  4. COENZYME Q10 [Concomitant]
  5. ACETAMINOPHEN AND DIPHENHYDRAMINE (EXCEDRIN PM) [Concomitant]

REACTIONS (13)
  - ANAEMIA [None]
  - AUTOIMMUNE DISORDER [None]
  - DIZZINESS [None]
  - DYSPNOEA [None]
  - ECCHYMOSIS [None]
  - EPISTAXIS [None]
  - FATIGUE [None]
  - IDIOPATHIC THROMBOCYTOPENIC PURPURA [None]
  - INFLUENZA LIKE ILLNESS [None]
  - MENORRHAGIA [None]
  - PETECHIAE [None]
  - PYREXIA [None]
  - RASH MACULAR [None]
